FAERS Safety Report 20898242 (Version 1)
Quarter: 2022Q2

REPORT INFORMATION
  Report Type: Spontaneous
  Country: FR (occurrence: None)
  Receive Date: 20220531
  Receipt Date: 20220531
  Transmission Date: 20220721
  Serious: Yes (Other)
  Sender: FDA-Public Use
  Company Number: 2022A198697

PATIENT
  Age: 76 Year
  Sex: Male

DRUGS (1)
  1. DAPAGLIFLOZIN [Suspect]
     Active Substance: DAPAGLIFLOZIN
     Indication: Diabetes mellitus
     Dosage: 1.0DF UNKNOWN
     Route: 048
     Dates: start: 202204

REACTIONS (4)
  - Blood glucose fluctuation [Unknown]
  - Asthenia [Unknown]
  - Micturition urgency [Unknown]
  - Confusional state [Unknown]

NARRATIVE: CASE EVENT DATE: 20220401
